FAERS Safety Report 15885971 (Version 1)
Quarter: 2019Q1

REPORT INFORMATION
  Report Type: Spontaneous
  Country: US (occurrence: US)
  Receive Date: 20190129
  Receipt Date: 20190129
  Transmission Date: 20190417
  Serious: No
  Sender: FDA-Public Use
  Company Number: US-SA-2019SA024598

PATIENT
  Age: 59 Year
  Sex: Male

DRUGS (1)
  1. WELCHOL [Suspect]
     Active Substance: COLESEVELAM HYDROCHLORIDE
     Indication: BLOOD CHOLESTEROL INCREASED
     Dosage: 3750 MG, QD
     Route: 048
     Dates: start: 2011, end: 201811

REACTIONS (1)
  - Product dose omission [Not Recovered/Not Resolved]
